FAERS Safety Report 8991968 (Version 1)
Quarter: 2012Q4

REPORT INFORMATION
  Report Type: Report from Study
  Country: ES (occurrence: ES)
  Receive Date: 20121231
  Receipt Date: 20121231
  Transmission Date: 20130627
  Serious: Yes (Death)
  Sender: FDA-Public Use
  Company Number: ES-OTSUKA-EU-2012-10286

PATIENT
  Age: 74 Year
  Sex: Male

DRUGS (5)
  1. PLETAL [Suspect]
     Indication: INTERMITTENT CLAUDICATION
     Dosage: 200 Mg milligram(s), UNK
     Route: 048
     Dates: start: 20100715
  2. ACETYLSALICYLIC ACID [Concomitant]
     Dosage: 100 Mg milligram(s), daily dose
  3. BISOPROLOL [Concomitant]
     Dosage: 2.5 Mg milligram(s), daily dose
  4. GLYCERYL TRINITRATE [Concomitant]
     Dosage: 15 Mg milligram(s), daily dose
  5. TORASEMIDE [Concomitant]
     Dosage: 5 Mg milligram(s), daily dose

REACTIONS (1)
  - Death [Fatal]
